FAERS Safety Report 5068293-8 (Version None)
Quarter: 2006Q3

REPORT INFORMATION
  Report Type: 
  Country: None (occurrence: None)
  Receive Date: 20060802
  Receipt Date: 20050720
  Transmission Date: 20061208
  Serious: Yes (Hospitalization, Other)
  Sender: FDA-Public Use
  Company Number: US-BRISTOL-MYERS SQUIBB COMPANY-13045356

PATIENT
  Age: 48 Year
  Sex: Female
  Weight: 83 kg

DRUGS (11)
  1. COUMADIN [Suspect]
     Indication: AORTIC VALVE REPLACEMENT
     Dosage: VARIED DOSES SINCE 2002; CURRENT DOSAGE RANGE 3-7MG NOW 4MG QD
     Route: 048
     Dates: start: 20020908
  2. SEROQUEL [Suspect]
     Dosage: 300 MG AT BEDTIME
  3. PERCOCET [Concomitant]
  4. KAY CIEL DURA-TABS [Concomitant]
  5. ZOCOR [Concomitant]
     Dosage: 20 MG AT BEDTIME
  6. CLONAZEPAM [Concomitant]
  7. PROTONIX [Concomitant]
  8. PROMETHAZINE [Concomitant]
  9. EFFEXOR [Concomitant]
  10. FERROUS SULFATE TAB [Concomitant]
  11. COREG [Concomitant]

REACTIONS (7)
  - CONTUSION [None]
  - INTERNATIONAL NORMALISED RATIO INCREASED [None]
  - NAUSEA [None]
  - TREMOR [None]
  - VAGINAL HAEMORRHAGE [None]
  - VOMITING [None]
  - WEIGHT INCREASED [None]
